FAERS Safety Report 12496769 (Version 1)
Quarter: 2016Q2

REPORT INFORMATION
  Report Type: Spontaneous
  Country: KR (occurrence: KR)
  Receive Date: 20160624
  Receipt Date: 20160624
  Transmission Date: 20160815
  Serious: Yes (Other)
  Sender: FDA-Public Use
  Company Number: KR-009507513-1606KOR010992

PATIENT
  Sex: Male

DRUGS (2)
  1. JANUVIA [Suspect]
     Active Substance: SITAGLIPTIN PHOSPHATE
     Dosage: UNK
     Route: 048
     Dates: start: 2008
  2. METFORMIN HYDROCHLORIDE (+) VOGLIBOSE [Suspect]
     Active Substance: METFORMIN\VOGLIBOSE
     Indication: BLOOD GLUCOSE ABNORMAL

REACTIONS (4)
  - Road traffic accident [Unknown]
  - Abdominal distension [Unknown]
  - Spinal operation [Unknown]
  - Blood glucose abnormal [Unknown]
